FAERS Safety Report 17921023 (Version 2)
Quarter: 2020Q3

REPORT INFORMATION
  Report Type: Report from Study
  Country: None (occurrence: FR)
  Receive Date: 20200622
  Receipt Date: 20200831
  Transmission Date: 20201103
  Serious: Yes (Death, Hospitalization)
  Sender: FDA-Public Use
  Company Number: FR-ABBVIE-20K-056-3453628-00

PATIENT
  Sex: Male
  Weight: 43 kg

DRUGS (3)
  1. CLOZAPINE. [Concomitant]
     Active Substance: CLOZAPINE
     Indication: SUBSTANCE-INDUCED PSYCHOTIC DISORDER
     Route: 048
     Dates: start: 2017, end: 20200604
  2. DUODOPA [Suspect]
     Active Substance: CARBIDOPA\LEVODOPA
  3. DUODOPA [Suspect]
     Active Substance: CARBIDOPA\LEVODOPA
     Indication: PARKINSON^S DISEASE
     Dosage: CONTINUOUS DOSE DURING DAY: 100 MG/H, CONTINUOUS DOSE DURING NIGHT: 70 MG/H
     Route: 050
     Dates: start: 20171218, end: 20200604

REACTIONS (4)
  - Obstruction [Fatal]
  - Multiple organ dysfunction syndrome [Fatal]
  - Lung disorder [Fatal]
  - Hospitalisation [Unknown]
